FAERS Safety Report 7004994-X (Version None)
Quarter: 2010Q3

REPORT INFORMATION
  Report Type: 
  Country: None (occurrence: None)
  Receive Date: 20100921
  Receipt Date: 20100909
  Transmission Date: 20110219
  Serious: Yes (Other)
  Sender: FDA-Public Use
  Company Number: FR-AMGEN-US376563

PATIENT
  Age: 8 Year
  Sex: Female

DRUGS (2)
  1. ENBREL [Suspect]
     Indication: JUVENILE ARTHRITIS
     Route: 058
     Dates: start: 20070101, end: 20090101
  2. ENBREL [Suspect]
     Route: 058
     Dates: start: 20090101, end: 20100226

REACTIONS (4)
  - CONDITION AGGRAVATED [None]
  - DEMYELINATION [None]
  - DISTURBANCE IN ATTENTION [None]
  - JUVENILE ARTHRITIS [None]
